FAERS Safety Report 5708916-0 (Version None)
Quarter: 2008Q2

REPORT INFORMATION
  Report Type: 
  Country: None (occurrence: None)
  Receive Date: 20080416
  Receipt Date: 20080402
  Transmission Date: 20081010
  Serious: Yes (Other)
  Sender: FDA-Public Use
  Company Number: FABR-1000165

PATIENT
  Age: 25 Year
  Sex: Male
  Weight: 105 kg

DRUGS (6)
  1. FABRAZYME [Suspect]
     Indication: FABRY'S DISEASE
     Dosage: 105 MG, Q2W, INTRAVENOUS
     Route: 042
     Dates: start: 20080129
  2. BENADRYL [Concomitant]
  3. APAP (PARACETAMOL) [Concomitant]
  4. CYMBALTA [Concomitant]
  5. TRAMADOL HCL [Concomitant]
  6. METOPROLOL TARTRATE [Concomitant]

REACTIONS (10)
  - BLOOD PRESSURE DECREASED [None]
  - DIZZINESS [None]
  - ERYTHEMA [None]
  - FEELING HOT [None]
  - FLUSHING [None]
  - HEART RATE DECREASED [None]
  - INFUSION RELATED REACTION [None]
  - PRESYNCOPE [None]
  - SKIN DISCOLOURATION [None]
  - SWOLLEN TONGUE [None]
